FAERS Safety Report 26002798 (Version 1)
Quarter: 2025Q4

REPORT INFORMATION
  Report Type: Spontaneous
  Country: EU (occurrence: EU)
  Receive Date: 20251106
  Receipt Date: 20251106
  Transmission Date: 20260117
  Serious: Yes (Disabling)
  Sender: TEVA
  Company Number: None

PATIENT
  Age: 51 Year
  Sex: Female
  Weight: 68 kg

DRUGS (1)
  1. GLATIRAMER ACETATE [Suspect]
     Active Substance: GLATIRAMER ACETATE
     Indication: Multiple sclerosis
     Dosage: ONCE/EVERY 3 DAYS, COPAXONE
     Route: 065
     Dates: start: 20251016, end: 20251016

REACTIONS (6)
  - Contusion [Not Recovered/Not Resolved]
  - Asthenia [Recovering/Resolving]
  - Trigeminal neuralgia [Recovering/Resolving]
  - Hypoaesthesia [Recovering/Resolving]
  - Infusion site bruising [Not Recovered/Not Resolved]
  - Pain [Recovered/Resolved]

NARRATIVE: CASE EVENT DATE: 20251016
